FAERS Safety Report 7145612-X (Version None)
Quarter: 2010Q4

REPORT INFORMATION
  Report Type: 
  Country: None (occurrence: None)
  Receive Date: 20101208
  Receipt Date: 20100729
  Transmission Date: 20110411
  Serious: No
  Sender: FDA-Public Use
  Company Number: US-ABBOTT-10P-163-0660716-00

PATIENT
  Age: 30 Year
  Sex: Female

DRUGS (8)
  1. ERYTHROMYCIN BASE [Suspect]
     Indication: PRODUCT USED FOR UNKNOWN INDICATION
  2. CLINDAMYCIN [Concomitant]
     Indication: ACNE
     Route: 061
  3. BENZOYL PEROXIDE [Concomitant]
     Indication: ACNE
     Route: 061
  4. PROVIGIL [Concomitant]
     Indication: SLEEP DISORDER
  5. VITAMIN B [Concomitant]
     Indication: PRODUCT USED FOR UNKNOWN INDICATION
  6. MAGNESIUM [Concomitant]
     Indication: PRODUCT USED FOR UNKNOWN INDICATION
  7. ASPIRIN [Concomitant]
     Indication: PRODUCT USED FOR UNKNOWN INDICATION
  8. HUMIRA [Concomitant]
     Indication: CROHN'S DISEASE
     Dates: start: 20100501

REACTIONS (1)
  - RASH [None]
